FAERS Safety Report 15942548 (Version 1)
Quarter: 2019Q1

REPORT INFORMATION
  Report Type: Spontaneous
  Country: DE (occurrence: DE)
  Receive Date: 20190210
  Receipt Date: 20190210
  Transmission Date: 20190417
  Serious: Yes (Hospitalization)
  Sender: FDA-Public Use
  Company Number: PHHY2019DE027471

PATIENT
  Sex: Male
  Weight: 90 kg

DRUGS (11)
  1. FLUTAMID [Concomitant]
     Active Substance: FLUTAMIDE
     Indication: PROPHYLAXIS
     Dosage: 250 MG, QD
     Route: 065
  2. BISOPROLOL RATIOPHARM [Concomitant]
     Active Substance: BISOPROLOL
     Indication: PROPHYLAXIS
     Dosage: 2.5 MG, QD
     Route: 065
  3. PAMIDRONAT GRY [Concomitant]
     Indication: PROPHYLAXIS
     Dosage: 90 MG, QMO
     Route: 065
     Dates: start: 20160411, end: 20170704
  4. TROMCARDIN COMPLEX [Concomitant]
     Indication: PROPHYLAXIS
     Dosage: 2 MG, QD
     Route: 065
  5. HYDROMORPHONHYDROCHLORID BETA [Concomitant]
     Indication: PRODUCT USED FOR UNKNOWN INDICATION
     Dosage: 2 MG, QD
     Route: 065
  6. RIVAROXABAN [Concomitant]
     Active Substance: RIVAROXABAN
     Indication: PROPHYLAXIS
     Dosage: 15 MG, QD
     Route: 065
  7. CARFILZOMIB [Suspect]
     Active Substance: CARFILZOMIB
     Dosage: 56 MG/M2, UNK
     Route: 042
     Dates: start: 20170704, end: 20170712
  8. HYDROMORPHON RATIOPHARM [Concomitant]
     Indication: PROPHYLAXIS
     Dosage: 1.3 MG, QD
     Route: 065
  9. DICLOFENAC RATIOPHARM [Concomitant]
     Active Substance: DICLOFENAC
     Indication: PROPHYLAXIS
     Dosage: 145 MG, QD
     Route: 065
  10. DEXAMETHASONE. [Suspect]
     Active Substance: DEXAMETHASONE
     Indication: PLASMA CELL MYELOMA
     Dosage: 20 MG, UNK
     Route: 065
  11. CARFILZOMIB [Suspect]
     Active Substance: CARFILZOMIB
     Indication: PLASMA CELL MYELOMA
     Dosage: 20 MG/M2, UNK
     Route: 042
     Dates: start: 20170627, end: 20170628

REACTIONS (1)
  - Stomatitis [Recovered/Resolved]

NARRATIVE: CASE EVENT DATE: 20170717
